FAERS Safety Report 6862641-1 (Version None)
Quarter: 2010Q3

REPORT INFORMATION
  Report Type: 
  Country: None (occurrence: None)
  Receive Date: 20100721
  Receipt Date: 20100716
  Transmission Date: 20110219
  Serious: Yes (Other)
  Sender: FDA-Public Use
  Company Number: GXKR2010DE07873

PATIENT
  Sex: Male

DRUGS (1)
  1. LOPERAMID 1A PHARMA (NGX) [Suspect]
     Route: 048

REACTIONS (1)
  - INTENTIONAL DRUG MISUSE [None]
